FAERS Safety Report 25848145 (Version 1)
Quarter: 2025Q3

REPORT INFORMATION
  Report Type: Report from Study
  Country: IN (occurrence: IN)
  Receive Date: 20250925
  Receipt Date: 20250925
  Transmission Date: 20251021
  Serious: Yes (Other)
  Sender: DAIICHI
  Company Number: IN-AstraZeneca-CH-00952062A

PATIENT
  Age: 32 Year
  Sex: Female
  Weight: 48 kg

DRUGS (1)
  1. ENHERTU [Suspect]
     Active Substance: FAM-TRASTUZUMAB DERUXTECAN-NXKI
     Indication: Product used for unknown indication
     Dosage: 100 MG, ONCE EVERY 3 WK
     Route: 042
     Dates: start: 20250901

REACTIONS (4)
  - Pleural effusion [Recovered/Resolved]
  - Angina pectoris [Recovered/Resolved]
  - Heavy menstrual bleeding [Recovered/Resolved]
  - Decreased appetite [Recovered/Resolved]
